FAERS Safety Report 19988769 (Version 2)
Quarter: 2021Q4

REPORT INFORMATION
  Report Type: Other
  Country: US (occurrence: US)
  Receive Date: 20211024
  Receipt Date: 20211223
  Transmission Date: 20220303
  Serious: Yes (Hospitalization, Congenital Anomaly, Other)
  Sender: FDA-Public Use
  Company Number: US-COVIS PHARMA GMBH-2021COV24416

PATIENT
  Sex: Male
  Weight: 1.268 kg

DRUGS (1)
  1. MAKENA [Suspect]
     Active Substance: HYDROXYPROGESTERONE CAPROATE
     Indication: Foetal exposure during pregnancy
     Route: 064
     Dates: start: 20210617, end: 20210930

REACTIONS (4)
  - Nonreassuring foetal heart rate pattern [Unknown]
  - Foetal biophysical profile score abnormal [Unknown]
  - Foetal growth restriction [Unknown]
  - Premature baby [Recovered/Resolved]

NARRATIVE: CASE EVENT DATE: 20210101
